FAERS Safety Report 14752668 (Version 1)
Quarter: 2018Q2

REPORT INFORMATION
  Report Type: Spontaneous
  Country: RU (occurrence: KZ)
  Receive Date: 20180412
  Receipt Date: 20180412
  Transmission Date: 20180711
  Serious: Yes (Other)
  Sender: FDA-Public Use
  Company Number: RU-JNJFOC-20180410300

PATIENT
  Sex: Female

DRUGS (5)
  1. XARELTO [Suspect]
     Active Substance: RIVAROXABAN
     Indication: DEEP VEIN THROMBOSIS
     Route: 048
     Dates: start: 201712, end: 20180223
  2. XARELTO [Suspect]
     Active Substance: RIVAROXABAN
     Indication: THROMBOSIS PROPHYLAXIS
     Route: 048
     Dates: start: 201712, end: 20180223
  3. XARELTO [Suspect]
     Active Substance: RIVAROXABAN
     Indication: THROMBOSIS PROPHYLAXIS
     Route: 048
     Dates: start: 20180223
  4. XARELTO [Suspect]
     Active Substance: RIVAROXABAN
     Indication: DEEP VEIN THROMBOSIS
     Route: 048
     Dates: start: 20180223
  5. VESSEL DUE F [Concomitant]
     Active Substance: SULODEXIDE
     Route: 065

REACTIONS (4)
  - Haemoglobin decreased [Unknown]
  - Uterine leiomyoma [Unknown]
  - Thrombosis [Unknown]
  - Menorrhagia [Unknown]

NARRATIVE: CASE EVENT DATE: 20180228
